FAERS Safety Report 21190088 (Version 1)
Quarter: 2022Q3

REPORT INFORMATION
  Report Type: Spontaneous
  Country: CA (occurrence: CA)
  Receive Date: 20220809
  Receipt Date: 20220809
  Transmission Date: 20221027
  Serious: Yes (Death)
  Sender: FDA-Public Use
  Company Number: CA-PFIZER INC-202101117460

PATIENT
  Age: 50 Year
  Sex: Female

DRUGS (3)
  1. BRAFTOVI [Suspect]
     Active Substance: ENCORAFENIB
     Dosage: UNK
     Dates: start: 20210816
  2. BRAFTOVI [Suspect]
     Active Substance: ENCORAFENIB
     Dosage: 300 MG
     Dates: start: 20210927
  3. CETUXIMAB [Concomitant]
     Active Substance: CETUXIMAB

REACTIONS (5)
  - Death [Fatal]
  - Headache [Unknown]
  - Dizziness [Unknown]
  - Asthenia [Unknown]
  - Weight decreased [Unknown]

NARRATIVE: CASE EVENT DATE: 20210920
